FAERS Safety Report 6279877-3 (Version None)
Quarter: 2009Q3

REPORT INFORMATION
  Report Type: 
  Country: None (occurrence: None)
  Receive Date: 20090723
  Receipt Date: 20090717
  Transmission Date: 20100115
  Serious: Yes (Death, Other)
  Sender: FDA-Public Use
  Company Number: PHHY2009PT29675

PATIENT
  Age: 70 Year
  Sex: Female

DRUGS (1)
  1. ZOLEDRONIC ACID [Suspect]
     Dosage: 4 MG, QMO, TOTAL SEVEN CYCLES
     Route: 042
     Dates: start: 20040101

REACTIONS (7)
  - ACTINOMYCOSIS [None]
  - BONE DISORDER [None]
  - HIP ARTHROPLASTY [None]
  - METASTASES TO BONE [None]
  - METASTASES TO CENTRAL NERVOUS SYSTEM [None]
  - MOUTH ULCERATION [None]
  - OSTEONECROSIS [None]
